FAERS Safety Report 23704049 (Version 2)
Quarter: 2024Q2

REPORT INFORMATION
  Report Type: Report from Study
  Country: AR (occurrence: AR)
  Receive Date: 20240403
  Receipt Date: 20240405
  Transmission Date: 20240716
  Serious: Yes (Hospitalization, Other)
  Sender: FDA-Public Use
  Company Number: AR-JNJFOC-20240346571

PATIENT
  Age: 24 Year
  Sex: Female
  Weight: 28 kg

DRUGS (1)
  1. MACITENTAN\TADALAFIL [Suspect]
     Active Substance: MACITENTAN\TADALAFIL
     Indication: Pulmonary arterial hypertension
     Dosage: DOSE: 1 TABLET?DOSE: 1 TABLET MACITENTAN 10 MG /TADALAFILO 40 MG
     Route: 048
     Dates: start: 20230828

REACTIONS (3)
  - Seizure [Not Recovered/Not Resolved]
  - Joint injury [Not Recovered/Not Resolved]
  - Oxygen saturation decreased [Not Recovered/Not Resolved]

NARRATIVE: CASE EVENT DATE: 20240229
